FAERS Safety Report 25766989 (Version 1)
Quarter: 2025Q3

REPORT INFORMATION
  Report Type: Spontaneous
  Country: US (occurrence: None)
  Receive Date: 20250904
  Receipt Date: 20250904
  Transmission Date: 20251021
  Serious: Yes (Disabling, Other)
  Sender: FDA-CTU
  Company Number: None

PATIENT
  Age: 64 Year
  Sex: Female

DRUGS (4)
  1. ELIQUIS [Suspect]
     Active Substance: APIXABAN
     Indication: Palpitations
     Dosage: FREQUENCY : DAILY;?
     Route: 048
     Dates: start: 20230101, end: 20230821
  2. ELIQUIS [Suspect]
     Active Substance: APIXABAN
     Indication: Atrial fibrillation
  3. NP THYROID [Concomitant]
     Active Substance: LEVOTHYROXINE\LIOTHYRONINE
  4. VITAMINS [Concomitant]
     Active Substance: VITAMINS

REACTIONS (9)
  - Muscle disorder [None]
  - Pain [None]
  - Depression [None]
  - Gait disturbance [None]
  - Therapy cessation [None]
  - Feeling abnormal [None]
  - Near death experience [None]
  - Quality of life decreased [None]
  - Product prescribing issue [None]

NARRATIVE: CASE EVENT DATE: 20230821
